FAERS Safety Report 9540769 (Version 3)
Quarter: 2013Q4

REPORT INFORMATION
  Report Type: Spontaneous
  Country: US (occurrence: US)
  Receive Date: 20130920
  Receipt Date: 20131122
  Transmission Date: 20140711
  Serious: Yes (Hospitalization)
  Sender: FDA-Public Use
  Company Number: GXBR2013US001706

PATIENT
  Sex: Female
  Weight: 77.98 kg

DRUGS (8)
  1. ALPRAZOLAM TABLETS USP [Suspect]
     Indication: ANXIETY DISORDER
     Dosage: 2 MG, TID
     Route: 048
  2. BENICAR HCT [Concomitant]
     Indication: HYPERTENSION
     Dosage: 40MG OLMESARTAN AND 25MG HYDROCHLOROTHIAZIDE, QD
     Route: 048
  3. GLYBURIDE [Concomitant]
     Indication: DIABETES MELLITUS
     Dosage: 2.5 MG, QD
     Route: 048
  4. LYRICA [Concomitant]
     Indication: FIBROMYALGIA
     Dosage: 75 MG, QID
     Route: 048
  5. VENTOLIN HFA [Concomitant]
     Indication: ASTHMA
     Dosage: UNK DF, PRN
  6. ALBUTEROL [Concomitant]
     Indication: ASTHMA
     Dosage: UNK DF, QD
  7. SIMVASTATIN [Concomitant]
     Indication: BLOOD CHOLESTEROL INCREASED
     Dosage: UNK MG, UNK
  8. HYDROCODONE [Concomitant]
     Indication: BACK PAIN
     Dosage: UNK MG, UNK
     Dates: end: 2012

REACTIONS (7)
  - Drug withdrawal syndrome [Recovered/Resolved]
  - Psychotic disorder [Recovered/Resolved]
  - Convulsion [Recovered/Resolved]
  - Oxygen saturation decreased [Recovered/Resolved]
  - Skin discolouration [Recovered/Resolved]
  - Respiratory disorder [Recovered/Resolved]
  - Drug ineffective [Unknown]
